FAERS Safety Report 5045998-6 (Version None)
Quarter: 2006Q3

REPORT INFORMATION
  Report Type: 
  Country: None (occurrence: None)
  Receive Date: 20060710
  Receipt Date: 20060524
  Transmission Date: 20061208
  Serious: Yes (Life-Threatening, Hospitalization)
  Sender: FDA-Public Use
  Company Number: CA-GILEAD-2006-0009641

PATIENT
  Sex: Male
  Weight: 63.2 kg

DRUGS (6)
  1. TRUVADA [Suspect]
     Indication: HIV INFECTION
     Route: 048
     Dates: start: 20060410
  2. SAQUINAVIR [Suspect]
     Indication: HIV INFECTION
     Route: 048
     Dates: start: 20060410
  3. RITONAVIR [Suspect]
     Indication: HIV INFECTION
     Route: 048
     Dates: start: 20060410
  4. SEPTRA [Concomitant]
     Dates: start: 20051201
  5. ATIVAN [Concomitant]
     Dates: start: 20060101
  6. RISPERIDONE [Concomitant]
     Dates: start: 20060110

REACTIONS (7)
  - ASTHENIA [None]
  - CENTRAL NERVOUS SYSTEM LESION [None]
  - GENERAL PHYSICAL HEALTH DETERIORATION [None]
  - IMMUNE RECONSTITUTION SYNDROME [None]
  - LYMPHOMA [None]
  - TOXOPLASMOSIS [None]
  - WEIGHT DECREASED [None]
